FAERS Safety Report 10222947 (Version 1)
Quarter: 2014Q2

REPORT INFORMATION
  Report Type: Spontaneous
  Country: IL (occurrence: IL)
  Receive Date: 20140607
  Receipt Date: 20140607
  Transmission Date: 20141212
  Serious: Yes (Hospitalization)
  Sender: FDA-Public Use
  Company Number: PHHY2014IL068021

PATIENT
  Age: 38 Year
  Sex: Female

DRUGS (5)
  1. ACICLOVIR [Suspect]
     Indication: VARICELLA ZOSTER PNEUMONIA
     Route: 042
  2. CEFTRIAXONE [Suspect]
     Indication: VARICELLA ZOSTER PNEUMONIA
  3. AZITHROMYCIN [Suspect]
     Indication: VARICELLA ZOSTER PNEUMONIA
  4. METHOTREXATE [Concomitant]
     Indication: PSORIATIC ARTHROPATHY
  5. METHOTREXATE [Concomitant]
     Indication: TOBACCO USER

REACTIONS (2)
  - Varicella zoster pneumonia [Recovered/Resolved]
  - Condition aggravated [Recovered/Resolved]
